FAERS Safety Report 7504299-4 (Version None)
Quarter: 2011Q2

REPORT INFORMATION
  Report Type: 
  Country: None (occurrence: None)
  Receive Date: 20110404
  Receipt Date: 20101013
  Transmission Date: 20111010
  Serious: Yes (Other)
  Sender: FDA-Public Use
  Company Number: 011436

PATIENT

DRUGS (5)
  1. METHOTREXATE [Concomitant]
  2. BUSULFEX [Suspect]
     Indication: BONE MARROW TRANSPLANT
     Dosage: INTRAVENOUS
     Route: 042
  3. CYCLOSPORINE [Concomitant]
  4. CYCLOPHOSPHAMIDE [Concomitant]
  5. PREDNISONE [Concomitant]

REACTIONS (2)
  - VENOOCCLUSIVE DISEASE [None]
  - ACUTE GRAFT VERSUS HOST DISEASE [None]
